FAERS Safety Report 19830033 (Version 1)
Quarter: 2021Q3

REPORT INFORMATION
  Report Type: Spontaneous
  Country: US (occurrence: US)
  Receive Date: 20210914
  Receipt Date: 20210914
  Transmission Date: 20211014
  Serious: Yes (Hospitalization)
  Sender: FDA-Public Use
  Company Number: None

PATIENT
  Age: 65 Year
  Sex: Female
  Weight: 88.5 kg

DRUGS (13)
  1. LANTUS 60 UNITS DAILY [Concomitant]
  2. AXITINIB [Suspect]
     Active Substance: AXITINIB
     Indication: CLEAR CELL RENAL CELL CARCINOMA
     Route: 048
     Dates: start: 20210817, end: 20210826
  3. METOPROLOL ER 100 MG DAILY [Concomitant]
  4. FLUDRICORTISONE 0.1 MG DAILY [Concomitant]
  5. LORAZEPAM 1 MG DAILY PRN [Concomitant]
  6. HYROCHLOROTHIAZIDE 25 MG DAILY [Concomitant]
  7. PREDNISONE 5 MG DAILY [Concomitant]
  8. DULOXETINE 30 MG DAILY [Concomitant]
  9. METFORMIN 1000 MG PO BID [Concomitant]
  10. ONDANSETRON 8 MG PO Q8HR PRN [Concomitant]
  11. LISINOPRIL 40 MG DAILY [Concomitant]
  12. ATORVASTAIN 40 MG DAILY [Concomitant]
  13. NOVOLOG 16 UNITS TID [Concomitant]

REACTIONS (5)
  - Pain in extremity [None]
  - Hypertension [None]
  - Vision blurred [None]
  - Headache [None]
  - Posterior reversible encephalopathy syndrome [None]

NARRATIVE: CASE EVENT DATE: 20210826
